FAERS Safety Report 9370187 (Version 2)
Quarter: 2013Q3

REPORT INFORMATION
  Report Type: Spontaneous
  Country: US (occurrence: US)
  Receive Date: 20130626
  Receipt Date: 20130725
  Transmission Date: 20140515
  Serious: No
  Sender: FDA-Public Use
  Company Number: US-ROXANE LABORATORIES, INC.-2013-RO-01060RO

PATIENT
  Age: 45 Year
  Sex: Female

DRUGS (2)
  1. LITHIUM CARBONATE [Suspect]
     Indication: BIPOLAR DISORDER
     Dosage: 675 MG
     Route: 048
  2. ZYPREXA [Concomitant]
     Dosage: 2.5 MG

REACTIONS (4)
  - Antipsychotic drug level below therapeutic [Not Recovered/Not Resolved]
  - Nausea [Not Recovered/Not Resolved]
  - Mood swings [Not Recovered/Not Resolved]
  - Product quality issue [Not Recovered/Not Resolved]
